FAERS Safety Report 7221825-3 (Version None)
Quarter: 2011Q1

REPORT INFORMATION
  Report Type: 
  Country: None (occurrence: None)
  Receive Date: 20110112
  Receipt Date: 20110104
  Transmission Date: 20110831
  Serious: Yes (Other)
  Sender: FDA-Public Use
  Company Number: A0884240A

PATIENT
  Age: 77 Year
  Sex: Female

DRUGS (4)
  1. LISINOPRIL [Concomitant]
  2. ALBUTEROL [Concomitant]
  3. ADVAIR [Suspect]
     Indication: ASTHMA
     Dosage: 1PUFF TWICE PER DAY
     Route: 055
     Dates: start: 20010613
  4. GLIPIZIDE [Concomitant]

REACTIONS (4)
  - WHEEZING [None]
  - ASTHMA [None]
  - COUGH [None]
  - DRUG INEFFECTIVE [None]
